FAERS Safety Report 6253883-7 (Version None)
Quarter: 2009Q3

REPORT INFORMATION
  Report Type: 
  Country: None (occurrence: None)
  Receive Date: 20090702
  Receipt Date: 20090622
  Transmission Date: 20100115
  Serious: Yes (Other)
  Sender: FDA-Public Use
  Company Number: PHHY2009IT25039

PATIENT
  Age: 40 Year

DRUGS (2)
  1. MYCOPHENOLIC ACID [Suspect]
     Indication: LIVER TRANSPLANT
     Dosage: 1040 MG
     Route: 048
  2. CYCLOSPORINE [Suspect]
     Indication: LIVER TRANSPLANT
     Dosage: 75 MG, UNK

REACTIONS (5)
  - BONE MARROW FAILURE [None]
  - CHOLESTASIS [None]
  - HEPATIC FIBROSIS [None]
  - HEPATITIS C [None]
  - RENAL FAILURE [None]
